FAERS Safety Report 24176976 (Version 4)
Quarter: 2024Q3

REPORT INFORMATION
  Report Type: Spontaneous
  Country: KR (occurrence: KR)
  Receive Date: 20240806
  Receipt Date: 20240827
  Transmission Date: 20241016
  Serious: Yes (Hospitalization, Other)
  Sender: CELLTRION
  Company Number: KR-CELLTRION INC.-2024KR018596

PATIENT

DRUGS (8)
  1. INFLIXIMAB [Suspect]
     Active Substance: INFLIXIMAB
     Indication: Ankylosing spondylitis
     Dosage: 515.5 MILLIGRAM; VISIT 1 (WEEK 0)
     Route: 042
     Dates: start: 20230914
  2. INFLIXIMAB [Suspect]
     Active Substance: INFLIXIMAB
     Dosage: 509 MILLIGRAM; VISIT 1-1 (WEEK 2)
     Route: 042
     Dates: start: 20231005
  3. INFLIXIMAB [Suspect]
     Active Substance: INFLIXIMAB
     Indication: Ankylosing spondylitis
     Dosage: 40 MG/0.4 ML PEN, Q2WK; VISIT 2 (WEEK 12)
     Route: 058
     Dates: start: 20231101
  4. INFLIXIMAB [Suspect]
     Active Substance: INFLIXIMAB
     Dosage: 40 MG/0.4 ML PEN, Q2WK; VISIT 3 (WEEK 24)
     Route: 058
  5. AFLOQUALONE [Concomitant]
     Active Substance: AFLOQUALONE
     Indication: Ankylosing spondylitis
     Dosage: 20 MG, PRN
     Route: 048
     Dates: start: 20240227
  6. REBAMIPIDE [Concomitant]
     Active Substance: REBAMIPIDE
     Indication: Prophylaxis
     Dosage: 0.1 G, PRN
     Route: 048
     Dates: start: 20220721
  7. ACETAMINOPHEN\TRAMADOL HYDROCHLORIDE [Concomitant]
     Active Substance: ACETAMINOPHEN\TRAMADOL HYDROCHLORIDE
     Indication: Arthritis
     Dosage: 1 TAB, PRN
     Route: 048
     Dates: start: 20240227
  8. ACECLOFENAC [Concomitant]
     Active Substance: ACECLOFENAC
     Indication: Arthritis
     Dosage: 100 MG, BID
     Route: 048
     Dates: start: 20230419, end: 20230531

REACTIONS (2)
  - Cholecystitis [Recovered/Resolved]
  - Intentional product use issue [Unknown]

NARRATIVE: CASE EVENT DATE: 20240609
